FAERS Safety Report 17934825 (Version 1)
Quarter: 2020Q2

REPORT INFORMATION
  Report Type: Spontaneous
  Country: US (occurrence: US)
  Receive Date: 20200623
  Receipt Date: 20200623
  Transmission Date: 20200714
  Serious: No
  Sender: FDA-Public Use
  Company Number: None

PATIENT
  Age: 32 Year

DRUGS (2)
  1. HEALTHBEACON [Concomitant]
  2. HUMIRA [Suspect]
     Active Substance: ADALIMUMAB
     Dosage: DOSE: 1 GTT
     Route: 030
     Dates: start: 20200511, end: 20200623

REACTIONS (2)
  - Rash [None]
  - Drug hypersensitivity [None]

NARRATIVE: CASE EVENT DATE: 20200623
